FAERS Safety Report 7646949-8 (Version None)
Quarter: 2011Q3

REPORT INFORMATION
  Report Type: 
  Country: None (occurrence: None)
  Receive Date: 20110725
  Receipt Date: 20110718
  Transmission Date: 20111222
  Serious: Yes (Other)
  Sender: FDA-Public Use
  Company Number: US-ACCORD-009969

PATIENT
  Age: 69 Year
  Sex: Female
  Weight: 56 kg

DRUGS (3)
  1. PRILOSEC [Concomitant]
  2. SIMVASTATIN [Suspect]
     Indication: BLOOD CHOLESTEROL INCREASED
     Dosage: 20.00-MG01.0DAYS / ORAL
     Route: 048
     Dates: start: 20110717
  3. FOSAMAX [Concomitant]

REACTIONS (2)
  - DYSPNOEA [None]
  - FEELING ABNORMAL [None]
